FAERS Safety Report 7373263-0 (Version None)
Quarter: 2011Q1

REPORT INFORMATION
  Report Type: 
  Country: None (occurrence: None)
  Receive Date: 20110324
  Receipt Date: 20110310
  Transmission Date: 20110831
  Serious: Yes (Other)
  Sender: FDA-Public Use
  Company Number: US-BAYER-2011-022494

PATIENT
  Sex: Male
  Weight: 60 kg

DRUGS (2)
  1. ALKA-SELTZER COLD FORMULA CHERRY BURST [Suspect]
     Indication: NASOPHARYNGITIS
     Dosage: 2 DF, UNK
     Route: 048
     Dates: start: 20110310
  2. ALKA-SELTZER PLUS NIGHT COLD [Suspect]
     Dosage: 2 DF, UNK
     Route: 048
     Dates: start: 20110309

REACTIONS (1)
  - BLOOD GLUCOSE INCREASED [None]
